FAERS Safety Report 9343197 (Version 1)
Quarter: 2013Q2

REPORT INFORMATION
  Report Type: Spontaneous
  Country: US (occurrence: US)
  Receive Date: 20130611
  Receipt Date: 20130611
  Transmission Date: 20140414
  Serious: Yes (Disabling)
  Sender: FDA-Public Use
  Company Number: US-US-EMD SERONO, INC.-7217228

PATIENT
  Sex: Female

DRUGS (2)
  1. EGRIFTA [Suspect]
     Indication: LIPODYSTROPHY ACQUIRED
     Dates: start: 2011, end: 2013
  2. GEODON [Suspect]
     Indication: MENTAL DISORDER

REACTIONS (1)
  - Pituitary hyperplasia [Unknown]
